FAERS Safety Report 22307424 (Version 1)
Quarter: 2023Q2

REPORT INFORMATION
  Report Type: Spontaneous
  Country: US (occurrence: US)
  Receive Date: 20230511
  Receipt Date: 20230511
  Transmission Date: 20230721
  Serious: No
  Sender: FDA-Public Use
  Company Number: US-Amarin Pharma, Inc.-2022AMR001363

PATIENT

DRUGS (7)
  1. VASCEPA [Suspect]
     Active Substance: ICOSAPENT ETHYL
     Indication: Blood triglycerides increased
     Dosage: 2 CAPSULES IN AM AND 2 CAPSULES IN PM
     Route: 048
  2. JARDIANCE [Concomitant]
     Active Substance: EMPAGLIFLOZIN
     Indication: Diabetes mellitus
  3. ROSUVASTATIN [Concomitant]
     Active Substance: ROSUVASTATIN
     Indication: Blood cholesterol
  4. ALLOPURINOL [Concomitant]
     Active Substance: ALLOPURINOL
     Indication: Gout
  5. FINASTERIDE [Concomitant]
     Active Substance: FINASTERIDE
     Indication: Prostatomegaly
  6. SYNTHROID [Concomitant]
     Active Substance: LEVOTHYROXINE SODIUM
     Indication: Hypothyroidism
  7. ASPIRIN [Concomitant]
     Active Substance: ASPIRIN
     Indication: Product used for unknown indication

REACTIONS (4)
  - Dyspepsia [Recovered/Resolved]
  - Poor quality product administered [Recovered/Resolved]
  - Product odour abnormal [Unknown]
  - Product colour issue [Unknown]
